FAERS Safety Report 5957610-X (Version None)
Quarter: 2008Q4

REPORT INFORMATION
  Report Type: 
  Country: None (occurrence: None)
  Receive Date: 20081107
  Receipt Date: 20081103
  Transmission Date: 20090506
  Serious: Yes (Hospitalization)
  Sender: FDA-Public Use
  Company Number: 2008BI029690

PATIENT
  Age: 41 Year
  Sex: Male

DRUGS (2)
  1. TYSABRI [Suspect]
     Indication: MULTIPLE SCLEROSIS
     Dosage: 300 MG; QM; IV
     Route: 042
     Dates: start: 20080507
  2. BACLOFEN [Concomitant]

REACTIONS (3)
  - DRUG EFFECT DECREASED [None]
  - MUSCLE SPASTICITY [None]
  - PULMONARY THROMBOSIS [None]
